FAERS Safety Report 25931011 (Version 1)
Quarter: 2025Q4

REPORT INFORMATION
  Report Type: Spontaneous
  Country: US (occurrence: US)
  Receive Date: 20251016
  Receipt Date: 20251016
  Transmission Date: 20260118
  Serious: Yes (Hospitalization)
  Sender: MYLAN
  Company Number: US-MYLANLABS-2025M1087985

PATIENT
  Age: 53 Year
  Sex: Male

DRUGS (2)
  1. POLYETHYLENE GLYCOL 3350 [4]
     Active Substance: POLYETHYLENE GLYCOL 3350
     Indication: Product used for unknown indication
     Dosage: UNK, PLANTAGO-OVATA WAS ADMINISTERED INSTEAD OF POLYETHYLENE-GLYCOL
  2. PSYLLIUM [Suspect]
     Active Substance: PLANTAGO SEED
     Indication: Bowel preparation
     Dosage: UNK, QH, 2 TABLESPOONS DISSOLVED IN 8 OZ OF WATER...

REACTIONS (2)
  - Wrong product administered [Recovering/Resolving]
  - Accidental overdose [Recovering/Resolving]
